FAERS Safety Report 15664590 (Version 4)
Quarter: 2019Q1

REPORT INFORMATION
  Report Type: Report from Study
  Country: None (occurrence: BR)
  Receive Date: 20181128
  Receipt Date: 20190226
  Transmission Date: 20190417
  Serious: Yes (Other)
  Sender: FDA-Public Use
  Company Number: BR-ABBVIE-18K-020-2567530-00

PATIENT
  Sex: Female
  Weight: 66 kg

DRUGS (7)
  1. STEZZA [Suspect]
     Active Substance: ESTRADIOL\NOMEGESTROL ACETATE
     Indication: CONTRACEPTION
     Route: 065
  2. ROCEFIN [Suspect]
     Active Substance: CEFTRIAXONE SODIUM
     Indication: PRODUCT USED FOR UNKNOWN INDICATION
     Route: 065
  3. HUMIRA [Suspect]
     Active Substance: ADALIMUMAB
     Indication: RHEUMATOID ARTHRITIS
     Route: 058
     Dates: start: 20181107, end: 20190123
  4. METICORTEN [Concomitant]
     Active Substance: PREDNISONE
     Indication: RHEUMATOID ARTHRITIS
  5. LIVALO [Suspect]
     Active Substance: PITAVASTATIN CALCIUM
     Indication: BLOOD CHOLESTEROL ABNORMAL
     Route: 065
  6. VITAMIN D [Concomitant]
     Active Substance: CHOLECALCIFEROL
     Indication: RHEUMATOID ARTHRITIS
  7. HUMIRA [Suspect]
     Active Substance: ADALIMUMAB
     Indication: RHEUMATOID ARTHRITIS
     Dosage: AROUND 2016 AND 2017
     Route: 058
     Dates: start: 2016

REACTIONS (11)
  - Drug-induced liver injury [Recovered/Resolved]
  - Eye infection [Recovering/Resolving]
  - Oral infection [Unknown]
  - Blindness [Unknown]
  - Granuloma [Unknown]
  - Face injury [Unknown]
  - Gingival recession [Unknown]
  - Tooth fracture [Unknown]
  - Tooth injury [Unknown]
  - Corneal disorder [Unknown]
  - Inflammation [Unknown]

NARRATIVE: CASE EVENT DATE: 2016
